FAERS Safety Report 7066418-6 (Version None)
Quarter: 2010Q4

REPORT INFORMATION
  Report Type: 
  Country: None (occurrence: None)
  Receive Date: 20101027
  Receipt Date: 20100212
  Transmission Date: 20110411
  Serious: No
  Sender: FDA-Public Use
  Company Number: US-WYE-H11787209

PATIENT
  Sex: Female
  Weight: 72.64 kg

DRUGS (4)
  1. PREMPRO [Suspect]
     Dosage: UNKNOWN
     Route: 065
  2. LISINOPRIL [Concomitant]
  3. MOTRIN [Concomitant]
  4. ENBREL [Concomitant]

REACTIONS (4)
  - EYE SWELLING [None]
  - RASH ERYTHEMATOUS [None]
  - RASH PRURITIC [None]
  - URTICARIA [None]
